FAERS Safety Report 4922286-7 (Version None)
Quarter: 2006Q1

REPORT INFORMATION
  Report Type: 
  Country: None (occurrence: None)
  Receive Date: 20060224
  Receipt Date: 20050722
  Transmission Date: 20060701
  Serious: Yes (Hospitalization, Other)
  Sender: FDA-Public Use
  Company Number: US-MERCK-0507USA03825

PATIENT
  Age: 47 Year
  Sex: Female

DRUGS (1)
  1. VIOXX [Suspect]
     Route: 048

REACTIONS (7)
  - ANGINA UNSTABLE [None]
  - CHEST PAIN [None]
  - CORONARY ARTERY DISEASE [None]
  - DYSPNOEA [None]
  - HYPOTENSION [None]
  - MITRAL VALVE PROLAPSE [None]
  - MYOCARDIAL INFARCTION [None]
